FAERS Safety Report 4283593-7 (Version None)
Quarter: 2004Q1

REPORT INFORMATION
  Report Type: 
  Country: None (occurrence: None)
  Receive Date: 20040202
  Receipt Date: 20040121
  Transmission Date: 20041129
  Serious: Yes (Hospitalization)
  Sender: FDA-Public Use
  Company Number: BE-GLAXOSMITHKLINE-B0320565A

PATIENT
  Age: 35 Year
  Sex: Male

DRUGS (2)
  1. PAROXETINE [Suspect]
     Dosage: 20MG PER DAY
     Route: 065
  2. ALPRAZOLAM [Concomitant]

REACTIONS (2)
  - GYNAECOMASTIA [None]
  - SURGERY [None]
